FAERS Safety Report 13023391 (Version 1)
Quarter: 2016Q4

REPORT INFORMATION
  Report Type: Spontaneous
  Country: US (occurrence: US)
  Receive Date: 20161211
  Receipt Date: 20161211
  Transmission Date: 20170207
  Serious: Yes (Other)
  Sender: FDA-Public Use
  Company Number: None

PATIENT
  Age: 57 Year
  Sex: Male
  Weight: 221 kg

DRUGS (6)
  1. AMYTRIPTALIEN [Concomitant]
  2. HUMALOG [Concomitant]
     Active Substance: INSULIN LISPRO
  3. VELPHORO [Suspect]
     Active Substance: FERRIC OXYHYDROXIDE
     Indication: END STAGE RENAL DISEASE
     Dosage: QUANTITY:3 TABLET(S);OTHER FREQUENCY:EACH MEAL;?
     Route: 048
     Dates: start: 20151201, end: 20161102
  4. LEVEMIR [Concomitant]
     Active Substance: INSULIN DETEMIR
  5. METATOPROLO [Concomitant]
  6. SENSISPAR [Concomitant]

REACTIONS (1)
  - Vomiting [None]

NARRATIVE: CASE EVENT DATE: 20161211
